FAERS Safety Report 24429361 (Version 2)
Quarter: 2025Q3

REPORT INFORMATION
  Report Type: Spontaneous
  Country: CN (occurrence: CN)
  Receive Date: 20241011
  Receipt Date: 20250804
  Transmission Date: 20251020
  Serious: Yes (Hospitalization, Other)
  Sender: ALEXION PHARMACEUTICALS
  Company Number: 6607011030753202400715

PATIENT
  Age: 57 Year
  Sex: Female
  Weight: 75 kg

DRUGS (3)
  1. DAPAGLIFLOZIN [Suspect]
     Active Substance: DAPAGLIFLOZIN
     Indication: Blood glucose abnormal
     Dosage: 10 MILLIGRAM, QD
  2. PIOGLITAZONE HYDROCHLORIDE AND METFORMIN HYDROCHLORIDE [Suspect]
     Active Substance: METFORMIN HYDROCHLORIDE\PIOGLITAZONE HYDROCHLORIDE
     Indication: Blood glucose abnormal
     Dosage: 15 MILLIGRAM, BID
     Dates: start: 20240801, end: 20240926
  3. INSULIN ASPART\INSULIN DEGLUDEC [Suspect]
     Active Substance: INSULIN ASPART\INSULIN DEGLUDEC
     Indication: Blood glucose abnormal
     Dosage: 14 INTERNATIONAL UNIT, QD
     Dates: start: 20240801, end: 20240826

REACTIONS (2)
  - Hypoglycaemic coma [Recovering/Resolving]
  - Diabetes mellitus [Unknown]

NARRATIVE: CASE EVENT DATE: 20240926
